FAERS Safety Report 11538515 (Version 1)
Quarter: 2015Q3

REPORT INFORMATION
  Report Type: Spontaneous
  Country: TR (occurrence: TR)
  Receive Date: 20150922
  Receipt Date: 20150922
  Transmission Date: 20151125
  Serious: Yes (Hospitalization, Other)
  Sender: FDA-Public Use
  Company Number: TR-AMGEN-TURSP2015096966

PATIENT
  Age: 35 Year
  Sex: Male

DRUGS (1)
  1. ENBREL [Suspect]
     Active Substance: ETANERCEPT
     Indication: ANKYLOSING SPONDYLITIS
     Dosage: UNK
     Route: 065

REACTIONS (11)
  - Blood pressure decreased [Unknown]
  - Dyspnoea [Unknown]
  - Swelling face [Unknown]
  - Wheezing [Unknown]
  - Vomiting [Unknown]
  - Anaphylactic reaction [Unknown]
  - Urticaria [Unknown]
  - Angioedema [Unknown]
  - Type IV hypersensitivity reaction [Unknown]
  - Nausea [Unknown]
  - Lip swelling [Unknown]
